FAERS Safety Report 10180653 (Version 1)
Quarter: 2014Q2

REPORT INFORMATION
  Report Type: Spontaneous
  Country: US (occurrence: None)
  Receive Date: 20140425
  Receipt Date: 20140425
  Transmission Date: 20141212
  Serious: No
  Sender: FDA-Public Use
  Company Number: AP356-00412-SPO-US

PATIENT
  Age: 67 Year
  Sex: Male
  Weight: 81 kg

DRUGS (6)
  1. BELVIQ (LORCASERIN HYDROCHLORIDE) [Suspect]
     Indication: WEIGHT DECREASED
     Route: 048
     Dates: start: 201312, end: 201312
  2. SYNTHROID(LEVOTHYROXINE SODIUM) [Concomitant]
  3. LISINOPRIL(LISINOPRIL) [Concomitant]
  4. LIPITOR(ATORVASTATIN CALCIUM) [Concomitant]
  5. BIOTIN(BIOTIN) [Concomitant]
  6. MVI(MVI) [Concomitant]

REACTIONS (1)
  - Alopecia [None]
